FAERS Safety Report 4960552-X (Version None)
Quarter: 2006Q1

REPORT INFORMATION
  Report Type: 
  Country: None (occurrence: None)
  Receive Date: 20060331
  Receipt Date: 20060331
  Transmission Date: 20060701
  Serious: Yes (Other)
  Sender: FDA-Public Use
  Company Number: None

PATIENT
  Age: 67 Year
  Sex: Female
  Weight: 82 kg

DRUGS (17)
  1. KETEK [Suspect]
     Indication: BRONCHITIS
  2. KETEK [Suspect]
     Indication: SINUSITIS
  3. LASIX [Concomitant]
  4. NAPROXEN [Concomitant]
  5. LOTENSIN [Concomitant]
  6. FLEXERIL [Concomitant]
  7. POTASSIUM [Concomitant]
  8. ACCOLATE [Concomitant]
  9. WELLBUTRIN SR [Concomitant]
  10. PAXIL [Concomitant]
  11. NIFEDIPINE [Concomitant]
  12. ASPIRIN [Concomitant]
  13. LOPID [Concomitant]
  14. LIPITOR [Concomitant]
  15. XALATAN [Concomitant]
  16. ADVAIR DISKUS 100/50 [Concomitant]
  17. OCCUVITE [Concomitant]

REACTIONS (3)
  - COLECTOMY [None]
  - COLON GANGRENE [None]
  - SEPSIS [None]
